FAERS Safety Report 8319357-4 (Version None)
Quarter: 2012Q2

REPORT INFORMATION
  Report Type: 
  Country: None (occurrence: None)
  Receive Date: 20120427
  Receipt Date: 20120419
  Transmission Date: 20120825
  Serious: Yes (Disabling, Other)
  Sender: FDA-Public Use
  Company Number: US-ASTRAZENECA-2012SE26006

PATIENT
  Age: 48 Year
  Sex: Male
  Weight: 100 kg

DRUGS (3)
  1. CRESTOR [Suspect]
     Route: 048
  2. JANUMET [Concomitant]
     Dosage: 50/1000 MG 1 TABLET EVERY DAY WITH MEAL
     Route: 048
  3. BENICAR HCT [Concomitant]
     Route: 048

REACTIONS (13)
  - CORONARY ARTERY DISEASE [None]
  - HYPERLIPIDAEMIA [None]
  - CHEST PAIN [None]
  - MALIGNANT HYPERTENSION [None]
  - GENERAL PHYSICAL HEALTH DETERIORATION [None]
  - ANGINA UNSTABLE [None]
  - DYSPNOEA [None]
  - ECZEMA [None]
  - LEARNING DISABILITY [None]
  - MALAISE [None]
  - TYPE 2 DIABETES MELLITUS [None]
  - FATIGUE [None]
  - CARDIAC FAILURE CONGESTIVE [None]
